FAERS Safety Report 19478776 (Version 2)
Quarter: 2021Q3

REPORT INFORMATION
  Report Type: Spontaneous
  Country: IN (occurrence: IN)
  Receive Date: 20210630
  Receipt Date: 20210804
  Transmission Date: 20211014
  Serious: Yes (Death, Other)
  Sender: FDA-Public Use
  Company Number: IN-PFIZER INC-2020196009

PATIENT
  Age: 70 Year
  Sex: Female

DRUGS (1)
  1. PALBACE [Suspect]
     Active Substance: PALBOCICLIB
     Indication: BREAST CANCER METASTATIC
     Dosage: 75 MG, ONCE A DAY
     Route: 048
     Dates: start: 20200512, end: 20210604

REACTIONS (1)
  - Death [Fatal]

NARRATIVE: CASE EVENT DATE: 20210604
